FAERS Safety Report 5007994-4 (Version None)
Quarter: 2006Q2

REPORT INFORMATION
  Report Type: 
  Country: None (occurrence: None)
  Receive Date: 20060404
  Receipt Date: 20050308
  Transmission Date: 20061013
  Serious: Yes (Other)
  Sender: FDA-Public Use
  Company Number: 2005041815

PATIENT
  Sex: 0

DRUGS (2)
  1. GEODON [Suspect]
     Indication: SCHIZOPHRENIA
     Dosage: 160 MG (80 MG, 2 IN 1 D)
  2. ARIPIPRAZOLE (ARIPIPRAZOLE) [Suspect]
     Indication: SCHIZOPHRENIA
     Dosage: 5 MG (1 IN 1 D)

REACTIONS (1)
  - DYSTONIA [None]
